FAERS Safety Report 7769567-X (Version None)
Quarter: 2011Q3

REPORT INFORMATION
  Report Type: 
  Country: None (occurrence: None)
  Receive Date: 20110922
  Receipt Date: 20110328
  Transmission Date: 20111222
  Serious: No
  Sender: FDA-Public Use
  Company Number: US-ASTRAZENECA-2011SE17492

PATIENT
  Age: 635 Month
  Sex: Female

DRUGS (2)
  1. SEROQUEL [Suspect]
     Route: 048
     Dates: start: 20050801
  2. HYDROCHLOROTHIAZIDE [Concomitant]
     Route: 048
     Dates: start: 20050923

REACTIONS (11)
  - SCHIZOPHRENIA [None]
  - OBESITY [None]
  - DEPRESSION [None]
  - ANAEMIA [None]
  - FUNGAL INFECTION [None]
  - VULVOVAGINAL BURNING SENSATION [None]
  - WEIGHT INCREASED [None]
  - HYPERTENSION [None]
  - TYPE 2 DIABETES MELLITUS [None]
  - PELVIC INFLAMMATORY DISEASE [None]
  - HYPERLIPIDAEMIA [None]
